FAERS Safety Report 19681737 (Version 1)
Quarter: 2021Q3

REPORT INFORMATION
  Report Type: Report from Study
  Country: US (occurrence: US)
  Receive Date: 20210810
  Receipt Date: 20210810
  Transmission Date: 20211014
  Serious: Yes (Hospitalization)
  Sender: FDA-Public Use
  Company Number: US-JNJFOC-20210806324

PATIENT
  Age: 48 Year
  Sex: Male

DRUGS (5)
  1. SPRAVATO [Suspect]
     Active Substance: ESKETAMINE
     Indication: DEPRESSION
     Dosage: 56 MG, TOTAL 1 DOSE
     Dates: start: 20210323, end: 20210323
  2. SPRAVATO [Suspect]
     Active Substance: ESKETAMINE
     Dates: start: 20210730, end: 20210730
  3. SPRAVATO [Suspect]
     Active Substance: ESKETAMINE
     Dosage: 56 MG, TOTAL 1 DOSE
     Dates: start: 20210326, end: 20210326
  4. SPRAVATO [Suspect]
     Active Substance: ESKETAMINE
     Dosage: 84 MG, TOTAL 1 DOSE
     Dates: start: 20210330, end: 20210330
  5. SPRAVATO [Suspect]
     Active Substance: ESKETAMINE
     Dosage: 84 MG, 24 TOTAL DOSES
     Dates: start: 20210402, end: 20210716

REACTIONS (2)
  - Suicidal ideation [Recovered/Resolved]
  - Dissociation [Recovered/Resolved]

NARRATIVE: CASE EVENT DATE: 20210722
